FAERS Safety Report 14134483 (Version 1)
Quarter: 2017Q4

REPORT INFORMATION
  Report Type: Spontaneous
  Country: ES (occurrence: ES)
  Receive Date: 20171027
  Receipt Date: 20171027
  Transmission Date: 20180321
  Serious: Yes (Hospitalization, Other)
  Sender: FDA-Public Use
  Company Number: ES-AUROBINDO-AUR-APL-2017-42463

PATIENT
  Age: 58 Year
  Sex: Female

DRUGS (5)
  1. METFORMIN [Concomitant]
     Active Substance: METFORMIN HYDROCHLORIDE
     Indication: PRODUCT USED FOR UNKNOWN INDICATION
  2. ARIPIPRAZOL [Suspect]
     Active Substance: ARIPIPRAZOLE
     Indication: NEUROLOGICAL DECOMPENSATION
     Dosage: 30 MG, ONCE A DAY
     Route: 065
     Dates: start: 2009
  3. CLOZAPINE. [Interacting]
     Active Substance: CLOZAPINE
     Indication: NEUROLOGICAL DECOMPENSATION
     Dosage: 600 MG, ONCE A DAY
     Route: 065
  4. CLOZAPINE. [Interacting]
     Active Substance: CLOZAPINE
     Dosage: 550 MG, ONCE A DAY
     Route: 065
  5. ENALAPRIL                          /00574902/ [Concomitant]
     Active Substance: ENALAPRIL
     Indication: PRODUCT USED FOR UNKNOWN INDICATION

REACTIONS (5)
  - Abdominal pain [Recovered/Resolved]
  - Nausea [Recovered/Resolved]
  - Drug interaction [Recovered/Resolved]
  - Ileus paralytic [Recovered/Resolved]
  - Vomiting [Recovered/Resolved]
